FAERS Safety Report 22030913 (Version 1)
Quarter: 2023Q1

REPORT INFORMATION
  Report Type: Spontaneous
  Country: US (occurrence: US)
  Receive Date: 20230223
  Receipt Date: 20230223
  Transmission Date: 20230418
  Serious: No
  Sender: FDA-Public Use
  Company Number: US-BoehringerIngelheim-2023-BI-220603

PATIENT
  Age: 80 Year
  Sex: Female

DRUGS (1)
  1. COMBIVENT RESPIMAT [Suspect]
     Active Substance: ALBUTEROL SULFATE\IPRATROPIUM BROMIDE
     Indication: Cough
     Dosage: FOUR PUFFS
     Route: 055
     Dates: start: 20230219

REACTIONS (4)
  - Vulvovaginal pruritus [Unknown]
  - Vulvovaginal exfoliation [Not Recovered/Not Resolved]
  - Vulvovaginal erythema [Unknown]
  - Intentional product use issue [Unknown]

NARRATIVE: CASE EVENT DATE: 20230220
